FAERS Safety Report 23604924 (Version 3)
Quarter: 2024Q3

REPORT INFORMATION
  Report Type: Spontaneous
  Country: FR (occurrence: FR)
  Receive Date: 20240307
  Receipt Date: 20240930
  Transmission Date: 20241017
  Serious: Yes (Other)
  Sender: SHILPA MEDICARE
  Company Number: None

PATIENT
  Age: 62 Year
  Sex: Male

DRUGS (3)
  1. IMATINIB [Suspect]
     Active Substance: IMATINIB
     Indication: Chronic lymphocytic leukaemia
     Route: 065
     Dates: start: 20191210, end: 20240515
  2. COMIRNATY NOS [Suspect]
     Active Substance: COVID-19 VACCINE
     Indication: COVID-19 immunisation
     Route: 030
     Dates: start: 20210401, end: 20210401
  3. COMIRNATY NOS [Suspect]
     Active Substance: COVID-19 VACCINE
     Route: 030
     Dates: start: 20210429, end: 20210429

REACTIONS (2)
  - Uveitis [Recovered/Resolved]
  - Scleritis [Not Recovered/Not Resolved]

NARRATIVE: CASE EVENT DATE: 20210517
